FAERS Safety Report 8509395 (Version 5)
Quarter: 2013Q1

REPORT INFORMATION
  Report Type: Spontaneous
  Country: GR (occurrence: GR)
  Receive Date: 20120412
  Receipt Date: 20130125
  Transmission Date: 20140127
  Serious: Yes (Other)
  Sender: FDA-Public Use
  Company Number: GR-AMGEN-GRCSP2012022719

PATIENT
  Age: 47 Year
  Sex: Female

DRUGS (1)
  1. PROLIA [Suspect]
     Indication: METASTASES TO BONE
     Dosage: 60 MG, Q2MO
     Dates: start: 201107, end: 201203

REACTIONS (2)
  - Pain in jaw [Recovered/Resolved]
  - Osteonecrosis of jaw [Recovering/Resolving]
